FAERS Safety Report 7285518-9 (Version None)
Quarter: 2011Q1

REPORT INFORMATION
  Report Type: 
  Country: None (occurrence: None)
  Receive Date: 20110125
  Receipt Date: 20110110
  Transmission Date: 20110831
  Serious: Yes (Death)
  Sender: FDA-Public Use
  Company Number: 025560

PATIENT
  Sex: Male

DRUGS (3)
  1. ALPRAZOLAM [Suspect]
     Dosage: (ORAL)
     Route: 048
  2. PAROXETINE HCL [Suspect]
     Dosage: (ORAL)
     Route: 048
  3. ACETAMINOPHEN AND OXYCODONE HCL [Suspect]
     Dosage: (ORAL)
     Route: 048

REACTIONS (2)
  - RESPIRATORY ARREST [None]
  - CARDIAC ARREST [None]
